FAERS Safety Report 5604579-3 (Version None)
Quarter: 2008Q1

REPORT INFORMATION
  Report Type: 
  Country: None (occurrence: None)
  Receive Date: 20080128
  Receipt Date: 20080117
  Transmission Date: 20080703
  Serious: Yes (Disabling)
  Sender: FDA-Public Use
  Company Number: GB-ASTRAZENECA-2001GB00289

PATIENT
  Age: 70 Year
  Sex: Male

DRUGS (3)
  1. PROPOFOL [Suspect]
     Indication: ANAESTHESIA
     Route: 042
     Dates: start: 20000525, end: 20000525
  2. SUBLIMAZE PRESERVATIVE FREE [Suspect]
     Indication: ANAESTHESIA
     Route: 042
     Dates: start: 20000525, end: 20000525
  3. ATENOLOL [Concomitant]
     Route: 065

REACTIONS (1)
  - ANOSMIA [None]
